FAERS Safety Report 9123493 (Version 2)
Quarter: 2013Q2

REPORT INFORMATION
  Report Type: Report from Study
  Country: BR (occurrence: BR)
  Receive Date: 20130115
  Receipt Date: 20130409
  Transmission Date: 20140414
  Serious: Yes (Other)
  Sender: FDA-Public Use
  Company Number: BR-SANOFI-AVENTIS-2013SA001723

PATIENT
  Age: 68 Year
  Sex: Female
  Weight: 78 kg

DRUGS (7)
  1. APIDRA [Suspect]
     Indication: TYPE 2 DIABETES MELLITUS
     Dosage: ACCORDING TO CARBOHYDRATES COUNTING
     Route: 058
     Dates: start: 2009
  2. LANTUS [Suspect]
     Indication: TYPE 2 DIABETES MELLITUS
     Route: 058
     Dates: start: 2009
  3. OMEPRAZOLE [Concomitant]
     Indication: ABDOMINAL DISCOMFORT
     Route: 048
     Dates: start: 2010
  4. AZATHIOPRINE [Concomitant]
     Indication: ILL-DEFINED DISORDER
     Route: 048
     Dates: start: 2010
  5. LOSARTAN POTASSIUM [Concomitant]
     Indication: HYPERTENSION
     Route: 048
     Dates: start: 2011
  6. ATORVASTATIN [Concomitant]
     Indication: HYPERTENSION
     Route: 048
     Dates: start: 2010
  7. TACROLIMUS [Concomitant]
     Indication: ILL-DEFINED DISORDER
     Route: 048
     Dates: start: 2010

REACTIONS (6)
  - Renal transplant [Not Recovered/Not Resolved]
  - Hyperglycaemia [Not Recovered/Not Resolved]
  - Vision blurred [Not Recovered/Not Resolved]
  - Peripheral coldness [Not Recovered/Not Resolved]
  - Tremor [Not Recovered/Not Resolved]
  - Drug ineffective [Unknown]
